FAERS Safety Report 9800381 (Version 3)
Quarter: 2014Q2

REPORT INFORMATION
  Report Type: Spontaneous
  Country: BE (occurrence: BE)
  Receive Date: 20140106
  Receipt Date: 20140404
  Transmission Date: 20141212
  Serious: Yes (Hospitalization, Other)
  Sender: FDA-Public Use
  Company Number: BE-AMGEN-BELSP2013090339

PATIENT
  Age: 59 Year
  Sex: Male

DRUGS (1)
  1. CINACALCET HCL [Suspect]
     Indication: HYPERPARATHYROIDISM SECONDARY
     Dosage: 30 MG, QD
     Route: 065

REACTIONS (5)
  - Paraparesis [Unknown]
  - Paraesthesia oral [Unknown]
  - Electrocardiogram abnormal [Unknown]
  - Hyperkalaemia [Recovered/Resolved]
  - Hypocalcaemia [Unknown]
